FAERS Safety Report 8428356 (Version 4)
Quarter: 2013Q1

REPORT INFORMATION
  Report Type: Report from Study
  Country: US (occurrence: US)
  Receive Date: 20120227
  Receipt Date: 20130103
  Transmission Date: 20140127
  Serious: Yes (Hospitalization)
  Sender: FDA-Public Use
  Company Number: US-ACTELION-A-US2012-61127

PATIENT
  Age: 78 Year
  Sex: Female

DRUGS (3)
  1. TRACLEER [Suspect]
     Indication: PULMONARY ARTERIAL HYPERTENSION
     Dosage: UNK
     Route: 048
     Dates: start: 20091022
  2. VENTAVIS [Suspect]
     Indication: PULMONARY ARTERIAL HYPERTENSION
     Dosage: UNK
     Route: 055
     Dates: start: 20080520
  3. REVATIO [Concomitant]

REACTIONS (8)
  - Heart rate decreased [Unknown]
  - Blood pressure increased [Unknown]
  - Cardiac disorder [Unknown]
  - Fatigue [Unknown]
  - Oedema [Unknown]
  - Local swelling [Unknown]
  - Dyspnoea [Unknown]
  - Vomiting [Unknown]
